FAERS Safety Report 11007185 (Version 1)
Quarter: 2015Q2

REPORT INFORMATION
  Report Type: Report from Study
  Country: US (occurrence: US)
  Receive Date: 20150409
  Receipt Date: 20150409
  Transmission Date: 20150821
  Serious: Yes (Death)
  Sender: FDA-Public Use
  Company Number: US-ACTELION-A-NJ2015-113547

PATIENT
  Age: 39 Year
  Sex: Female

DRUGS (3)
  1. REVATIO [Concomitant]
     Active Substance: SILDENAFIL CITRATE
  2. VELETRI [Suspect]
     Active Substance: EPOPROSTENOL
     Indication: PULMONARY HYPERTENSION
     Dosage: 5 NG/KG, PER MIN
     Route: 042
     Dates: start: 20150210
  3. ASPIRIN. [Concomitant]
     Active Substance: ASPIRIN

REACTIONS (8)
  - Flushing [Unknown]
  - Upper respiratory tract infection [Unknown]
  - Death [Fatal]
  - Abdominal pain [Unknown]
  - Headache [Unknown]
  - Pain in jaw [Unknown]
  - Diarrhoea [Unknown]
  - Nausea [Unknown]

NARRATIVE: CASE EVENT DATE: 20150331
